FAERS Safety Report 6596985-8 (Version None)
Quarter: 2010Q1

REPORT INFORMATION
  Report Type: 
  Country: None (occurrence: None)
  Receive Date: 20100223
  Receipt Date: 20100215
  Transmission Date: 20100710
  Serious: Yes (Other)
  Sender: FDA-Public Use
  Company Number: US-JNJFOC-20100206860

PATIENT
  Age: 72 Year
  Sex: Female
  Weight: 77.11 kg

DRUGS (7)
  1. TYLENOL [Suspect]
     Route: 048
  2. TYLENOL [Suspect]
     Indication: ARTHRITIS
     Route: 048
  3. LIPITOR [Concomitant]
     Indication: BLOOD CHOLESTEROL ABNORMAL
  4. MICARDIS [Concomitant]
     Indication: HYPERTENSION
  5. MECLIZINE [Concomitant]
     Indication: DIZZINESS
  6. DIAZEPAM [Concomitant]
     Indication: BACK PAIN
  7. VITAMIN [Concomitant]

REACTIONS (3)
  - DIARRHOEA [None]
  - PRODUCT QUALITY ISSUE [None]
  - RECTAL HAEMORRHAGE [None]
